FAERS Safety Report 22380197 (Version 3)
Quarter: 2023Q2

REPORT INFORMATION
  Report Type: Spontaneous
  Country: JP (occurrence: JP)
  Receive Date: 20230529
  Receipt Date: 20230630
  Transmission Date: 20230721
  Serious: Yes (Death, Other)
  Sender: FDA-Public Use
  Company Number: JP-UCBJ-CD202304839UCBPHAPROD

PATIENT
  Age: 86 Year
  Sex: Male

DRUGS (2)
  1. LEVETIRACETAM [Suspect]
     Active Substance: LEVETIRACETAM
     Indication: Seizure prophylaxis
     Dosage: 250 MILLIGRAM
     Route: 048
     Dates: end: 20230428
  2. LEVETIRACETAM [Suspect]
     Active Substance: LEVETIRACETAM
     Indication: Off label use

REACTIONS (4)
  - Dysphagia [Fatal]
  - Coronavirus pneumonia [Fatal]
  - Marasmus [Fatal]
  - Off label use [Unknown]

NARRATIVE: CASE EVENT DATE: 20221201
